FAERS Safety Report 4645976-2 (Version None)
Quarter: 2005Q2

REPORT INFORMATION
  Report Type: 
  Country: None (occurrence: None)
  Receive Date: 20050427
  Receipt Date: 20050414
  Transmission Date: 20051028
  Serious: Yes (Hospitalization)
  Sender: FDA-Public Use
  Company Number: JP-SOLVAY-00305001218

PATIENT
  Age: 57 Year
  Sex: Male

DRUGS (4)
  1. FLUVOXAMINE [Suspect]
     Indication: MAJOR DEPRESSION
     Dosage: DAILY DOSE: 150 MILLIGRAM(S)
     Route: 065
  2. FLUVOXAMINE MALEATE [Interacting]
     Dosage: DAILY DOSE: 50 MILLIGRAM(S)
     Route: 065
  3. FLUVOXAMINE MALEATE [Interacting]
     Dosage: DAILY DOSE: 100 MILLIGRAM(S)
     Route: 065
  4. QUETIAPINE [Interacting]
     Indication: IRRITABILITY
     Dosage: DAILY DOSE: 150 MILLIGRAM(S)
     Route: 065

REACTIONS (4)
  - DRUG INTERACTION [None]
  - NEUROLEPTIC MALIGNANT SYNDROME [None]
  - PNEUMONIA [None]
  - RESPIRATORY FAILURE [None]
